FAERS Safety Report 18876206 (Version 3)
Quarter: 2021Q1

REPORT INFORMATION
  Report Type: Report from Study
  Country: US (occurrence: US)
  Receive Date: 20210210
  Receipt Date: 20210325
  Transmission Date: 20210420
  Serious: No
  Sender: FDA-Public Use
  Company Number: US-ALLERGAN-2105663US

PATIENT
  Age: 23 Year
  Sex: Female
  Weight: 90.79 kg

DRUGS (4)
  1. ALBUTEROL. [Concomitant]
     Active Substance: ALBUTEROL
     Indication: COVID-19
     Dosage: UNK, PRN
     Route: 055
     Dates: start: 20200625, end: 20200702
  2. BLINDED CARIPRAZINE HCL 3MG CAP (TBD) [Suspect]
     Active Substance: CARIPRAZINE HYDROCHLORIDE
     Indication: BIPOLAR I DISORDER
     Dosage: UNK
     Dates: start: 20200529, end: 20200916
  3. BLINDED CARIPRAZINE HCL 1.5MG CAP (011327X) [Suspect]
     Active Substance: CARIPRAZINE HYDROCHLORIDE
     Indication: BIPOLAR I DISORDER
     Dosage: UNK
     Dates: start: 20200529, end: 20200916
  4. PLACEBO [Suspect]
     Active Substance: UNSPECIFIED INGREDIENT
     Indication: BIPOLAR I DISORDER
     Dosage: UNK
     Dates: start: 20200529, end: 20200916

REACTIONS (1)
  - Cataract nuclear [Unknown]

NARRATIVE: CASE EVENT DATE: 20200922
